FAERS Safety Report 15612963 (Version 1)
Quarter: 2018Q4

REPORT INFORMATION
  Report Type: Spontaneous
  Country: US (occurrence: US)
  Receive Date: 20181113
  Receipt Date: 20181113
  Transmission Date: 20190205
  Serious: Yes (Death, Other)
  Sender: FDA-Public Use
  Company Number: US-PFIZER INC-2018460507

PATIENT
  Age: 77 Year
  Sex: Female

DRUGS (3)
  1. LENALIDOMIDE [Concomitant]
     Active Substance: LENALIDOMIDE
     Indication: ACUTE MYELOID LEUKAEMIA
     Dosage: 10 MG, DAILY(BY MOUTH FOR 21 DAYS)
     Route: 048
  2. CYTARABINE. [Suspect]
     Active Substance: CYTARABINE
     Indication: ACUTE MYELOID LEUKAEMIA
     Dosage: 1X/DAY (2 G/M^2), CYCLIC, ON DAYS 1 THROUGH 5.
     Route: 042
  3. LENALIDOMIDE [Concomitant]
     Active Substance: LENALIDOMIDE
     Dosage: 10 MG, DAILY, GIVEN FOR 21 DAYS OF A 28 DAY CYCLES OLLOWED THE CYCLES OF CONSOLIDATION, FOR)
     Route: 048

REACTIONS (5)
  - Skin exfoliation [Unknown]
  - Immune-mediated adverse reaction [Unknown]
  - Rash [Unknown]
  - Enterococcal sepsis [Fatal]
  - Mucormycosis [Fatal]
